FAERS Safety Report 7502236-X (Version None)
Quarter: 2011Q2

REPORT INFORMATION
  Report Type: 
  Country: None (occurrence: None)
  Receive Date: 20110525
  Receipt Date: 20110520
  Transmission Date: 20111010
  Serious: Yes (Hospitalization)
  Sender: FDA-Public Use
  Company Number: CA-ABBOTT-11P-028-0727591-00

PATIENT
  Sex: Male
  Weight: 59.02 kg

DRUGS (3)
  1. PREDNISONE [Concomitant]
     Indication: CROHN'S DISEASE
     Dosage: 40 MG DAILY
     Route: 042
     Dates: start: 20110507
  2. PREDNISONE [Concomitant]
     Route: 048
     Dates: end: 20110507
  3. HUMIRA [Suspect]
     Indication: CROHN'S DISEASE
     Route: 058
     Dates: start: 20110414

REACTIONS (2)
  - ABDOMINAL PAIN [None]
  - SMALL INTESTINAL OBSTRUCTION [None]
